FAERS Safety Report 6905025-X (Version None)
Quarter: 2010Q3

REPORT INFORMATION
  Report Type: 
  Country: None (occurrence: None)
  Receive Date: 20100804
  Receipt Date: 20090827
  Transmission Date: 20110219
  Serious: No
  Sender: FDA-Public Use
  Company Number: US-PFIZER INC-2009240798

PATIENT
  Sex: Female

DRUGS (13)
  1. LYRICA [Suspect]
     Indication: NEUROPATHY PERIPHERAL
     Dosage: 75 MG, 1X/DAY
  2. LYRICA [Suspect]
     Dosage: 50 MG, 1X/DAY
  3. NEURONTIN [Concomitant]
     Dosage: 900 MG, AT BEDTIME
  4. KEPPRA [Concomitant]
     Dosage: 500 MG, AT BEDTIME
  5. LORAZEPAM [Concomitant]
     Dosage: 2 MG, AT BEDTIME
  6. SYNTHROID [Concomitant]
     Dosage: 100 MG, IN MORNING
  7. MOBIC [Concomitant]
     Dosage: 15 MG, AT BEDTIME
  8. OMEPRAZOLE [Concomitant]
     Dosage: 20 MG, IN MORNING
  9. OXYCONTIN [Concomitant]
     Dosage: 5 MG, 1X/DAY
  10. VITAMIN B1 TAB [Concomitant]
  11. CALCIUM [Concomitant]
  12. VITAMIN D [Concomitant]
  13. FISH OIL [Concomitant]

REACTIONS (2)
  - EMOTIONAL DISORDER [None]
  - MYDRIASIS [None]
